FAERS Safety Report 22827228 (Version 2)
Quarter: 2023Q4

REPORT INFORMATION
  Report Type: Report from Study
  Country: US (occurrence: US)
  Receive Date: 20230816
  Receipt Date: 20231031
  Transmission Date: 20240110
  Serious: Yes (Other)
  Sender: FDA-Public Use
  Company Number: US-ARGENX-2022-ARGX-US001402

PATIENT

DRUGS (1)
  1. VYVGART [Suspect]
     Active Substance: EFGARTIGIMOD ALFA-FCAB
     Indication: Myasthenia gravis
     Dosage: 10 MG/KG
     Route: 042
     Dates: start: 20220801

REACTIONS (12)
  - Pulmonary embolism [Unknown]
  - Pulmonary embolism [Unknown]
  - Coagulopathy [Unknown]
  - Fatigue [Unknown]
  - Pain [Unknown]
  - Discomfort [Unknown]
  - Arthralgia [Recovered/Resolved]
  - Hypertension [Unknown]
  - Blood thyroid stimulating hormone increased [Unknown]
  - Blood iron decreased [Unknown]
  - Dyspnoea [Unknown]
  - COVID-19 [Unknown]

NARRATIVE: CASE EVENT DATE: 20230501
